FAERS Safety Report 16461487 (Version 1)
Quarter: 2019Q2

REPORT INFORMATION
  Report Type: Spontaneous
  Country: AT (occurrence: AT)
  Receive Date: 20190620
  Receipt Date: 20190620
  Transmission Date: 20190711
  Serious: Yes (Disabling)
  Sender: FDA-Public Use
  Company Number: AT-009507513-2004-116898-NL

PATIENT
  Age: 34 Year
  Sex: Female

DRUGS (8)
  1. THYREX [Concomitant]
     Active Substance: LEVOTHYROXINE SODIUM
     Dosage: 0.1 MILLIGRAM
     Route: 048
  2. PREGNYL [Suspect]
     Active Substance: CHORIOGONADOTROPIN ALFA
     Indication: IN VITRO FERTILISATION
     Dosage: 1500 INTERNATIONAL UNIT, CONTINUING: NA, DAILYDOSE: 3 DF
     Dates: start: 20031112, end: 20031112
  3. MENOPUR [Suspect]
     Active Substance: FOLLITROPIN\LUTEINIZING HORMONE
     Indication: OVARIAN HYPERSTIMULATION SYNDROME
     Dosage: DOSE TEXT: 75/75 I.E.,CONTINUING: NA
     Route: 058
     Dates: start: 20031112, end: 20031112
  4. THYREX [Concomitant]
     Active Substance: LEVOTHYROXINE SODIUM
     Dosage: UNIT DOSE: .1 MG, FREQUENCY: QD
  5. PREGNYL [Suspect]
     Active Substance: CHORIOGONADOTROPIN ALFA
     Indication: OVULATION INDUCTION
     Dosage: 5000 INTERNATIONAL UNIT, CONTINUING: NA, DAILYDOSE: 3 DF
     Route: 058
     Dates: start: 20031112, end: 20031112
  6. IRON (UNSPECIFIED) (+) MINERALS (UNSPECIFIED) (+) VITAMINS (UNSPECIFIE [Concomitant]
     Active Substance: IRON\MINERALS\VITAMINS
     Dosage: 1 DOSAGE FORM, QD
  7. GONAL-F [Suspect]
     Active Substance: FOLLITROPIN
     Indication: OVARIAN HYPERSTIMULATION SYNDROME
     Dosage: UNK
     Route: 058
     Dates: start: 20031112, end: 20031112
  8. ASPIRIN. [Concomitant]
     Active Substance: ASPIRIN
     Dosage: 100 MILLIGRAM
     Route: 048

REACTIONS (2)
  - Ovarian hyperstimulation syndrome [Unknown]
  - Jugular vein thrombosis [Recovered/Resolved with Sequelae]

NARRATIVE: CASE EVENT DATE: 20031222
